FAERS Safety Report 5036453-8 (Version None)
Quarter: 2006Q2

REPORT INFORMATION
  Report Type: 
  Country: None (occurrence: None)
  Receive Date: 20060623
  Receipt Date: 20060619
  Transmission Date: 20061013
  Serious: Yes (Hospitalization)
  Sender: FDA-Public Use
  Company Number: DEWYE743919JUN06

PATIENT
  Age: 17 Year
  Sex: Female

DRUGS (2)
  1. RAPAMUNE [Suspect]
     Dosage: 9 MG
     Route: 048
     Dates: start: 20060101
  2. OMEPRAZOLE [Suspect]
     Dosage: 1 TABLET
     Route: 048
     Dates: start: 20060101

REACTIONS (2)
  - DRUG INTERACTION [None]
  - IMMUNOSUPPRESSANT DRUG LEVEL DECREASED [None]
